FAERS Safety Report 12321656 (Version 1)
Quarter: 2016Q2

REPORT INFORMATION
  Report Type: Spontaneous
  Country: US (occurrence: None)
  Receive Date: 20160429
  Receipt Date: 20160429
  Transmission Date: 20160815
  Serious: Yes (Other)
  Sender: FDA-Public Use
  Company Number: None

PATIENT
  Age: 35 Year
  Sex: Female
  Weight: 75.12 kg

DRUGS (1)
  1. CELECOXIB 200MG [Suspect]
     Active Substance: CELECOXIB
     Route: 048
     Dates: start: 20150701, end: 20150727

REACTIONS (3)
  - Drug ineffective [None]
  - Abdominal discomfort [None]
  - Product substitution issue [None]

NARRATIVE: CASE EVENT DATE: 20150701
